FAERS Safety Report 12857911 (Version 3)
Quarter: 2017Q1

REPORT INFORMATION
  Report Type: Spontaneous
  Country: US (occurrence: US)
  Receive Date: 20161018
  Receipt Date: 20170130
  Transmission Date: 20170428
  Serious: Yes (Other)
  Sender: FDA-Public Use
  Company Number: US-PFIZER INC-2016484808

PATIENT
  Age: 42 Year
  Sex: Female
  Weight: 73.94 kg

DRUGS (22)
  1. LYRICA [Suspect]
     Active Substance: PREGABALIN
     Dosage: 75 MG, UNK (2 OR 3 LYRICA)
  2. NORCO [Concomitant]
     Active Substance: ACETAMINOPHEN\HYDROCODONE BITARTRATE
     Indication: BACK PAIN
     Dosage: EVERY 4 TO 6 HOURS AS NEEDED
     Route: 048
  3. AUGMENTIN [Concomitant]
     Active Substance: AMOXICILLIN\CLAVULANATE POTASSIUM
     Dosage: 1 DF, 2X/DAY [AMOXICILLIN: 825MG/CLAVULANIC ACID: 125MG]
     Route: 048
  4. TESSALON [Concomitant]
     Active Substance: BENZONATATE
     Indication: COUGH
     Dosage: 100 MG, AS NEEDED (EVERY 8 (EIGHT) HOURS)
     Route: 048
  5. ZYRTEC [Concomitant]
     Active Substance: CETIRIZINE HYDROCHLORIDE
     Dosage: 10 MG, 1X/DAY
     Route: 048
  6. SINGULAIR [Concomitant]
     Active Substance: MONTELUKAST SODIUM
     Dosage: 10 MG, 1X/DAY (NIGHTLY)
     Route: 048
  7. LYRICA [Suspect]
     Active Substance: PREGABALIN
     Dosage: 1 DF, 2X/DAY
  8. DUONEB [Concomitant]
     Active Substance: ALBUTEROL SULFATE\IPRATROPIUM BROMIDE
     Dosage: UNK UNK, AS NEEDED (TAKE 3 ML BY NEBULIZATION EVERY 6 (SIX) HOURS)
     Route: 055
  9. UMECLIDINIUM-VILANTEROL [Concomitant]
     Dosage: UNK UNK, 1X/DAY [UMECLIDINIUM: 62.5MCG-VILANTEROL: 25 MCG]
     Route: 055
  10. NORCO [Concomitant]
     Active Substance: ACETAMINOPHEN\HYDROCODONE BITARTRATE
     Indication: PAIN
     Dosage: 1 DF, AS NEEDED [HYDROCODONE BITARTRATE: 410MG AND ACETAMINOPHEN: 325MG]
     Route: 048
  11. LYRICA [Suspect]
     Active Substance: PREGABALIN
     Indication: FIBROMYALGIA
     Dosage: 75 MG, 3X/DAY
     Route: 048
     Dates: start: 201305
  12. IBUPROFEN. [Concomitant]
     Active Substance: IBUPROFEN
     Indication: INFLAMMATION
     Dosage: 800 MG, AS NEEDED
     Route: 048
  13. PROAIR HFA [Concomitant]
     Active Substance: ALBUTEROL SULFATE
     Indication: WHEEZING
     Dosage: UNK UNK, AS NEEDED (INHALE 2 PUFFS EVERY 4 (FOUR) HOURS)
     Route: 055
  14. PROVENTIL [Concomitant]
     Active Substance: ALBUTEROL
     Indication: WHEEZING
     Dosage: UNK UNK, AS NEEDED (INHALE 2 PUFFS EVERY 4 (FOUR) HOURS)
     Route: 055
  15. SOMA [Concomitant]
     Active Substance: CARISOPRODOL
     Indication: MUSCLE SPASMS
     Dosage: 350 MG, AS NEEDED (EVERY 6 (SIX) HOURS)
     Route: 048
  16. VENTOLIN [Concomitant]
     Active Substance: ALBUTEROL SULFATE
     Indication: WHEEZING
     Dosage: UNK UNK, AS NEEDED (INHALE 2 PUFFS EVERY 4 (FOUR) HOURS)
     Route: 055
  17. PLETAL [Concomitant]
     Active Substance: CILOSTAZOL
     Dosage: 50 MG, 2X/DAY
     Route: 048
  18. PREMPRO [Concomitant]
     Active Substance: ESTROGENS, CONJUGATED\MEDROXYPROGESTERONE ACETATE
     Dosage: 1 DF, 1X/DAY [CONJUGATED ESTROGENS: 0.45MG/ MEDROXYPROGESTERONE:1.5 MG]
     Route: 048
  19. LASIX [Concomitant]
     Active Substance: FUROSEMIDE
     Indication: SWELLING
     Dosage: 40 MG, AS NEEDED (EVERY 1 (ONE) DAY)
     Route: 048
  20. ELIQUIS [Concomitant]
     Active Substance: APIXABAN
     Dosage: 5 MG, 2X/DAY
     Route: 048
  21. ADVIL [Concomitant]
     Active Substance: IBUPROFEN
     Indication: PAIN
     Dosage: 800 MG, AS NEEDED (EVERY 6 (SIX) HOURS)
  22. PROTONIX [Concomitant]
     Active Substance: PANTOPRAZOLE SODIUM
     Dosage: 40 MG, 1X/DAY
     Route: 048

REACTIONS (10)
  - Withdrawal syndrome [Unknown]
  - Thrombosis [Unknown]
  - Tonsillitis [Unknown]
  - Hyperhidrosis [Unknown]
  - Pain in extremity [Unknown]
  - Oxygen saturation abnormal [Unknown]
  - Back pain [Unknown]
  - Pain [Recovered/Resolved]
  - Memory impairment [Unknown]
  - Intentional product misuse [Unknown]

NARRATIVE: CASE EVENT DATE: 201602
